FAERS Safety Report 9942083 (Version 2)
Quarter: 2014Q1

REPORT INFORMATION
  Report Type: Report from Study
  Country: US (occurrence: US)
  Receive Date: 20140303
  Receipt Date: 20140303
  Transmission Date: 20141002
  Serious: No
  Sender: FDA-Public Use
  Company Number: US-ABBVIE-12P-163-1022312-00

PATIENT
  Age: 57 Year
  Sex: Female

DRUGS (5)
  1. HUMIRA [Suspect]
     Indication: CROHN^S DISEASE
     Route: 058
     Dates: start: 20120621
  2. PREDNISONE [Concomitant]
     Indication: PRODUCT USED FOR UNKNOWN INDICATION
     Dosage: TAPERING
  3. IMURAN [Concomitant]
     Indication: PRODUCT USED FOR UNKNOWN INDICATION
  4. PEPCID [Concomitant]
     Indication: PRODUCT USED FOR UNKNOWN INDICATION
  5. XANAX [Concomitant]
     Indication: INSOMNIA
     Dosage: AT BEDTIME
     Route: 048

REACTIONS (3)
  - Tooth disorder [Not Recovered/Not Resolved]
  - Bronchitis [Recovered/Resolved]
  - Influenza [Recovered/Resolved]
